FAERS Safety Report 22209749 (Version 2)
Quarter: 2023Q2

REPORT INFORMATION
  Report Type: Report from Study
  Country: KR (occurrence: KR)
  Receive Date: 20230414
  Receipt Date: 20230509
  Transmission Date: 20230722
  Serious: Yes (Hospitalization, Other)
  Sender: FDA-Public Use
  Company Number: KR-CELLTRION INC.-2023KR006928

PATIENT

DRUGS (11)
  1. HERZUMA [Suspect]
     Active Substance: TRASTUZUMAB-PKRB
     Indication: Breast cancer
     Dosage: (DAY 1 CLINICAL MEDICATION)
     Route: 042
     Dates: start: 20220418
  2. HERZUMA [Suspect]
     Active Substance: TRASTUZUMAB-PKRB
     Dosage: 6 MG/KG, 3/WEEK
     Route: 042
     Dates: start: 20220419, end: 20230330
  3. HERZUMA [Suspect]
     Active Substance: TRASTUZUMAB-PKRB
     Dosage: 12-CYCLE CHEMOTHERAPY
     Route: 042
     Dates: start: 20230302
  4. HERZUMA [Suspect]
     Active Substance: TRASTUZUMAB-PKRB
     Dosage: 6MG*50.0KG (BASELIGN BODYWEIGHT) = 330 MILLIGRAM
     Route: 042
     Dates: start: 20230330
  5. LEVOFLOXACIN [Concomitant]
     Active Substance: LEVOFLOXACIN
     Indication: Pneumonia
     Dosage: 750 MG, QD
     Route: 042
     Dates: start: 20230405, end: 20230405
  6. EPINEPHRINE [Concomitant]
     Active Substance: EPINEPHRINE
     Indication: Local anaesthesia
     Dosage: 9 MG, SINGLE
     Route: 042
     Dates: start: 20230404, end: 20230404
  7. FENTANYL CITRATE [Concomitant]
     Active Substance: FENTANYL CITRATE
     Indication: Local anaesthesia
     Dosage: 0.1 MG, SINGLE
     Route: 042
     Dates: start: 20230404, end: 20230404
  8. MIDAZOLAM [Concomitant]
     Active Substance: MIDAZOLAM
     Indication: Local anaesthesia
     Dosage: 5 MG, SINGLE
     Route: 042
     Dates: start: 20230404, end: 20230404
  9. LIDOCAINE [Concomitant]
     Active Substance: LIDOCAINE
     Indication: Local anaesthesia
     Dosage: 3600 MG, SINGLE
     Route: 042
     Dates: start: 20230404, end: 20230404
  10. LANSOPRAZOLE [Concomitant]
     Active Substance: LANSOPRAZOLE
     Indication: Gastritis prophylaxis
     Dosage: 15 MG, QD
     Route: 048
     Dates: start: 20230405
  11. LEVOPLUS [LEVOFLOXACIN] [Concomitant]
     Indication: Pneumonia
     Dosage: 750 MG, QD
     Route: 048

REACTIONS (2)
  - Pneumonia [Recovered/Resolved]
  - Overdose [Unknown]

NARRATIVE: CASE EVENT DATE: 20230328
